FAERS Safety Report 9496088 (Version 1)
Quarter: 2013Q3

REPORT INFORMATION
  Report Type: Spontaneous
  Country: US (occurrence: US)
  Receive Date: 20130904
  Receipt Date: 20130904
  Transmission Date: 20140515
  Serious: No
  Sender: FDA-Public Use
  Company Number: US-BIOGENIDEC-2013BI081739

PATIENT
  Sex: Female

DRUGS (1)
  1. TYSABRI [Suspect]
     Indication: MULTIPLE SCLEROSIS
     Route: 042
     Dates: start: 20080825

REACTIONS (4)
  - Diplopia [Recovered/Resolved]
  - Confusional state [Not Recovered/Not Resolved]
  - General symptom [Unknown]
  - Headache [Recovered/Resolved]
